FAERS Safety Report 6901821-3 (Version None)
Quarter: 2010Q3

REPORT INFORMATION
  Report Type: 
  Country: None (occurrence: None)
  Receive Date: 20100803
  Receipt Date: 20080320
  Transmission Date: 20110219
  Serious: No
  Sender: FDA-Public Use
  Company Number: US-PFIZER INC-2008025375

PATIENT
  Sex: Female
  Weight: 135 kg

DRUGS (13)
  1. LYRICA [Suspect]
     Indication: FIBROMYALGIA
     Route: 048
     Dates: start: 20080318
  2. ARICEPT [Concomitant]
  3. HYDROCODONE BITARTRATE [Concomitant]
  4. METFORMIN HCL [Concomitant]
  5. INDERAL [Concomitant]
  6. SYNTHROID [Concomitant]
  7. VITAMIN E [Concomitant]
  8. MULTI-VITAMINS [Concomitant]
  9. L-LYSINE [Concomitant]
  10. DRUG, UNSPECIFIED [Concomitant]
     Indication: GOUT
  11. VITAMIN B6 [Concomitant]
  12. VITAMIN B-12 [Concomitant]
  13. CHOLESTEROL- AND TRIGLYCERIDE REDUCERS [Concomitant]

REACTIONS (4)
  - DIZZINESS [None]
  - FATIGUE [None]
  - FEELING ABNORMAL [None]
  - SOMNOLENCE [None]
